FAERS Safety Report 8540967-3 (Version None)
Quarter: 2012Q3

REPORT INFORMATION
  Report Type: 
  Country: None (occurrence: None)
  Receive Date: 20120726
  Receipt Date: 20110809
  Transmission Date: 20120928
  Serious: No
  Sender: FDA-Public Use
  Company Number: US-ASTRAZENECA-2011SE47468

PATIENT
  Age: 47 Year
  Sex: Male
  Weight: 102.1 kg

DRUGS (1)
  1. SEROQUEL XR [Suspect]
     Indication: DEPRESSION
     Route: 048
     Dates: start: 20050101

REACTIONS (2)
  - DRUG DOSE OMISSION [None]
  - INSOMNIA [None]
